FAERS Safety Report 9869781 (Version 1)
Quarter: 2014Q1

REPORT INFORMATION
  Report Type: Spontaneous
  Country: US (occurrence: US)
  Receive Date: 20140205
  Receipt Date: 20140205
  Transmission Date: 20141002
  Serious: No
  Sender: FDA-Public Use
  Company Number: US-GLAXOSMITHKLINE-A1037753A

PATIENT
  Sex: 0

DRUGS (1)
  1. FONDAPARINUX SODIUM [Suspect]
     Indication: INJURY ASSOCIATED WITH DEVICE
     Route: 065

REACTIONS (2)
  - Injury associated with device [Unknown]
  - Product quality issue [Unknown]
